FAERS Safety Report 15027254 (Version 1)
Quarter: 2018Q2

REPORT INFORMATION
  Report Type: Spontaneous
  Country: NL (occurrence: NL)
  Receive Date: 20180619
  Receipt Date: 20180619
  Transmission Date: 20180711
  Serious: Yes (Life-Threatening, Other)
  Sender: FDA-Public Use
  Company Number: NL-TEVA-2018-NL-908053

PATIENT
  Age: 87 Year
  Sex: Male
  Weight: 100 kg

DRUGS (1)
  1. FENTANYL INJECTIE/INFUUS [Suspect]
     Active Substance: FENTANYL
     Indication: PAIN
     Dosage: 100 MCG = 2ML INJECTION FLUID
     Route: 065
     Dates: start: 20180415, end: 20180415

REACTIONS (3)
  - Loss of consciousness [Recovered/Resolved]
  - Oxygen saturation decreased [Recovered/Resolved]
  - Respiratory rate decreased [Recovered/Resolved]

NARRATIVE: CASE EVENT DATE: 20180415
